FAERS Safety Report 15374335 (Version 2)
Quarter: 2018Q3

REPORT INFORMATION
  Report Type: Other
  Country: IT (occurrence: IT)
  Receive Date: 20180912
  Receipt Date: 20180928
  Transmission Date: 20181010
  Serious: Yes (Other)
  Sender: FDA-Public Use
  Company Number: IT-MACLEODS PHARMACEUTICALS US LTD-MAC2017007527

PATIENT

DRUGS (2)
  1. ARIPIPRAZOLE. [Suspect]
     Active Substance: ARIPIPRAZOLE
     Indication: MAJOR DEPRESSION
     Dosage: 15 MILLIGRAM
     Route: 065
     Dates: start: 2007
  2. ARIPIPRAZOLE. [Suspect]
     Active Substance: ARIPIPRAZOLE
     Indication: MIGRAINE
     Dosage: 15 MILLIGRAM
     Route: 065
     Dates: start: 20160101

REACTIONS (2)
  - Product use in unapproved indication [Unknown]
  - Alice in wonderland syndrome [Unknown]
